FAERS Safety Report 4591322-2 (Version None)
Quarter: 2005Q1

REPORT INFORMATION
  Report Type: 
  Country: None (occurrence: None)
  Receive Date: 20050225
  Receipt Date: 20050216
  Transmission Date: 20050727
  Serious: Yes (Other)
  Sender: FDA-Public Use
  Company Number: JP-ROCHE-395943

PATIENT
  Age: 40 Year
  Sex: Female

DRUGS (3)
  1. KYTRIL [Suspect]
     Indication: PROPHYLAXIS OF NAUSEA AND VOMITING
     Route: 041
  2. PAXIL [Suspect]
     Route: 048
  3. CISPLATIN [Suspect]
     Indication: NEOPLASM MALIGNANT
     Route: 041

REACTIONS (2)
  - DRUG INTERACTION [None]
  - VOMITING [None]
